FAERS Safety Report 7276048-9 (Version None)
Quarter: 2011Q1

REPORT INFORMATION
  Report Type: 
  Country: None (occurrence: None)
  Receive Date: 20110204
  Receipt Date: 20110202
  Transmission Date: 20110831
  Serious: Yes (Hospitalization)
  Sender: FDA-Public Use
  Company Number: B0697791A

PATIENT
  Sex: Female

DRUGS (3)
  1. LAMICTAL [Suspect]
     Dosage: 700MG PER DAY
     Route: 048
     Dates: start: 20110126, end: 20110126
  2. DAPAROX [Suspect]
     Dosage: 500MG PER DAY
     Route: 048
     Dates: start: 20110126, end: 20110126
  3. ATARAX [Suspect]
     Dosage: 500MG PER DAY
     Route: 048
     Dates: start: 20110126, end: 20110126

REACTIONS (3)
  - BRADYPHRENIA [None]
  - BRADYKINESIA [None]
  - NYSTAGMUS [None]
